FAERS Safety Report 9889183 (Version 2)
Quarter: 2014Q1

REPORT INFORMATION
  Report Type: Report from Study
  Country: US (occurrence: US)
  Receive Date: 20140211
  Receipt Date: 20140325
  Transmission Date: 20141002
  Serious: Yes (Other)
  Sender: FDA-Public Use
  Company Number: US-US-EMD SERONO, INC.-7268142

PATIENT
  Age: 50 Year
  Sex: Male
  Weight: 79 kg

DRUGS (1)
  1. SEROSTIM [(SOMATROPIN (RDNA ORIGIN) FOR INJECTION)] [Suspect]
     Indication: HIV WASTING SYNDROME

REACTIONS (6)
  - Anogenital dysplasia [Unknown]
  - Anogenital dysplasia [Unknown]
  - Anorectal human papilloma virus infection [Unknown]
  - Deep vein thrombosis [Unknown]
  - Anogenital warts [Unknown]
  - Joint swelling [Unknown]
